FAERS Safety Report 11216986 (Version 3)
Quarter: 2015Q3

REPORT INFORMATION
  Report Type: Report from Study
  Country: US (occurrence: US)
  Receive Date: 20150624
  Receipt Date: 20150724
  Transmission Date: 20151125
  Serious: Yes (Hospitalization)
  Sender: FDA-Public Use
  Company Number: US-ACTELION-A-NJ2015-119832

PATIENT
  Age: 84 Year
  Sex: Female

DRUGS (1)
  1. MACITENTAN [Suspect]
     Active Substance: MACITENTAN
     Indication: PULMONARY ARTERIAL HYPERTENSION
     Dosage: 10 MG, QD
     Route: 048
     Dates: start: 20140224

REACTIONS (13)
  - Gastrointestinal haemorrhage [Unknown]
  - Spinal disorder [Unknown]
  - Cardiac failure congestive [Unknown]
  - Arthritis [Unknown]
  - Lung disorder [Unknown]
  - Abdominal pain upper [Unknown]
  - Drug dose omission [Unknown]
  - Urinary incontinence [Unknown]
  - Chest pain [Unknown]
  - Dyspnoea [Unknown]
  - Memory impairment [Unknown]
  - Back pain [Unknown]
  - Chest discomfort [Unknown]
